FAERS Safety Report 19321368 (Version 1)
Quarter: 2021Q2

REPORT INFORMATION
  Report Type: Report from Study
  Country: US (occurrence: US)
  Receive Date: 20210528
  Receipt Date: 20210528
  Transmission Date: 20210717
  Serious: Yes (Death)
  Sender: FDA-Public Use
  Company Number: US-ROCHE-2605808

PATIENT
  Sex: Male
  Weight: 102.6 kg

DRUGS (14)
  1. TOCILIZUMAB. [Suspect]
     Active Substance: TOCILIZUMAB
     Indication: COVID-19
     Route: 042
     Dates: start: 20200511, end: 20200511
  2. ASPIRIN. [Concomitant]
     Active Substance: ASPIRIN
  3. METFORMIN [Concomitant]
     Active Substance: METFORMIN HYDROCHLORIDE
  4. OMNIPAQUE [Concomitant]
     Active Substance: IOHEXOL
  5. GLIPIZIDE. [Concomitant]
     Active Substance: GLIPIZIDE
  6. METOPROLOL SUCCINATE. [Concomitant]
     Active Substance: METOPROLOL SUCCINATE
  7. INSULIN LISPRO [Concomitant]
     Active Substance: INSULIN LISPRO
     Dates: start: 20200507
  8. ALLOPURINOL. [Concomitant]
     Active Substance: ALLOPURINOL
  9. ATORVASTIN [Concomitant]
     Active Substance: ATORVASTATIN
  10. LASIX [Concomitant]
     Active Substance: FUROSEMIDE
  11. ELIQUIS [Concomitant]
     Active Substance: APIXABAN
     Dates: start: 20200507
  12. MELATONIN [Concomitant]
     Active Substance: MELATONIN
  13. LOPRESSOR [Concomitant]
     Active Substance: METOPROLOL TARTRATE
  14. TRAZODONE [Concomitant]
     Active Substance: TRAZODONE HYDROCHLORIDE

REACTIONS (1)
  - Respiratory failure [Fatal]
